FAERS Safety Report 17010215 (Version 8)
Quarter: 2023Q4

REPORT INFORMATION
  Report Type: Spontaneous
  Country: US (occurrence: US)
  Receive Date: 20191108
  Receipt Date: 20231208
  Transmission Date: 20240110
  Serious: Yes (Hospitalization, Other)
  Sender: FDA-Public Use
  Company Number: US-PFIZER INC-2019482441

PATIENT
  Age: 84 Year
  Sex: Female
  Weight: 56.236 kg

DRUGS (22)
  1. IBRANCE [Suspect]
     Active Substance: PALBOCICLIB
     Indication: Breast cancer metastatic
     Dosage: 21 DAYS ON, 7 DAYS OFF
     Dates: start: 201908, end: 2019
  2. IBRANCE [Suspect]
     Active Substance: PALBOCICLIB
     Dosage: DAILY, 21 DAYS ON, 7 DAYS OFF
     Route: 048
     Dates: start: 2019
  3. IBRANCE [Suspect]
     Active Substance: PALBOCICLIB
     Dosage: 100 MG, DAILY
     Route: 048
     Dates: start: 201907
  4. IBRANCE [Suspect]
     Active Substance: PALBOCICLIB
     Dosage: DAILY FOR 21 DAYS, STOP FOR 7 DAYS
     Route: 048
  5. IBRANCE [Suspect]
     Active Substance: PALBOCICLIB
     Dosage: DAILY FOR 21 DAYS  FOLLOWED BY 7 DAYS OFF
     Route: 048
  6. LETROZOLE [Suspect]
     Active Substance: LETROZOLE
     Indication: Breast cancer recurrent
     Dosage: 2.5 MG, DAILY
  7. LETROZOLE [Suspect]
     Active Substance: LETROZOLE
     Indication: Blood oestrogen increased
     Dosage: 2.5 MG, DAILY
     Route: 048
     Dates: start: 201907, end: 20191225
  8. LETROZOLE [Suspect]
     Active Substance: LETROZOLE
     Dosage: 2.5 MG, DAILY
     Route: 048
  9. ACETAMINOPHEN\TRAMADOL [Suspect]
     Active Substance: ACETAMINOPHEN\TRAMADOL
     Indication: Abdominal pain upper
     Dosage: 50 MG, 4X/DAY(EVERY 6 HRS)
     Dates: start: 20200101
  10. TRAMADOL [Suspect]
     Active Substance: TRAMADOL\TRAMADOL HYDROCHLORIDE
     Indication: Pain
     Dosage: 0.5 DF, UNK (HALF)
     Dates: start: 201911, end: 201911
  11. TRAMADOL [Suspect]
     Active Substance: TRAMADOL\TRAMADOL HYDROCHLORIDE
     Indication: Abdominal pain upper
     Dosage: 1 DF, 1X/DAY (WHOLE ONE; IN THE MORNING)
     Dates: start: 20191104
  12. TRAMADOL [Suspect]
     Active Substance: TRAMADOL\TRAMADOL HYDROCHLORIDE
     Dosage: 50 MG, AS NEEDED  (50 MG 1 TAB EVERY 6 HRS FOR STOMACH PAIN FOR 5 DAYS AS NEEDED)
     Route: 048
     Dates: end: 20200101
  13. LEVOFLOXACIN [Concomitant]
     Active Substance: LEVOFLOXACIN
     Dosage: 750 MG, DAILY
     Route: 048
     Dates: end: 20200101
  14. SIMVASTATIN [Concomitant]
     Active Substance: SIMVASTATIN
     Dosage: 20 MG, 1X/DAY(EVERY DAY AT BED TIME )
     Route: 048
     Dates: end: 20191231
  15. VITAMIN C [Concomitant]
     Active Substance: ASCORBIC ACID
     Dosage: 1 G, DAILY(1,000 MG)
     Route: 048
     Dates: end: 20200101
  16. VITAMIN D3 [Concomitant]
     Active Substance: CHOLECALCIFEROL
     Dosage: 400 IU, DAILY
     Route: 048
     Dates: end: 20200101
  17. DOCUSATE SODIUM [Concomitant]
     Active Substance: DOCUSATE SODIUM
     Dosage: 100 MG, 1X/DAY(BED TIME)
     Route: 048
     Dates: end: 20191231
  18. LEVOTHYROXINE [Concomitant]
     Active Substance: LEVOTHYROXINE
     Dosage: 75 UG, DAILY
     Route: 048
     Dates: end: 20191225
  19. HERBALS\TURMERIC [Concomitant]
     Active Substance: HERBALS\TURMERIC
     Dosage: 400 MG, DAILY
     Route: 048
     Dates: end: 20191225
  20. MINERALS\VITAMINS [Concomitant]
     Active Substance: MINERALS\VITAMINS
     Dosage: 1 DF, ALTERNATE DAY(1 TAB ORAL EVERY MONDAY, WEDNESDAY AND FRIDAY)
     Route: 048
     Dates: end: 20191225
  21. DOCONEXENT\ ICOSAPENT\ FISH OIL\ OMEGA-3 FATTY ACIDS [Concomitant]
     Active Substance: DOCONEXENT\ ICOSAPENT\ FISH OIL\ OMEGA-3 FATTY ACIDS
     Dosage: 1 DF, DAILY
     Route: 048
     Dates: end: 20191225
  22. VITAMINS [Concomitant]
     Active Substance: VITAMINS
     Dosage: 1 DF, DAILY
     Route: 048
     Dates: end: 20200101

REACTIONS (20)
  - Abdominal pain upper [Recovering/Resolving]
  - Malaise [Not Recovered/Not Resolved]
  - COVID-19 [Unknown]
  - Pneumonia [Unknown]
  - Sepsis [Unknown]
  - Campylobacter gastroenteritis [Unknown]
  - Hypersomnia [Not Recovered/Not Resolved]
  - Fatigue [Recovering/Resolving]
  - Full blood count decreased [Recovered/Resolved]
  - Vomiting [Recovered/Resolved]
  - Nausea [Not Recovered/Not Resolved]
  - Asthenia [Unknown]
  - Loss of personal independence in daily activities [Unknown]
  - Hypernatraemia [Unknown]
  - Influenza [Unknown]
  - Epistaxis [Unknown]
  - Sleep disorder [Unknown]
  - Arthralgia [Unknown]
  - Musculoskeletal chest pain [Unknown]
  - Underweight [Unknown]

NARRATIVE: CASE EVENT DATE: 20190101
